FAERS Safety Report 9817330 (Version 1)
Quarter: 2014Q1

REPORT INFORMATION
  Report Type: Other
  Country: GB (occurrence: GB)
  Receive Date: 20140115
  Receipt Date: 20140115
  Transmission Date: 20141002
  Serious: Yes (Hospitalization, Other)
  Sender: FDA-Public Use
  Company Number: GB-TAKEDA-2014TEU000251

PATIENT
  Age: 74 Year
  Sex: Male

DRUGS (7)
  1. PIOGLITAZONE [Suspect]
     Indication: PRODUCT USED FOR UNKNOWN INDICATION
     Dosage: 45 MG, DAILY
     Route: 048
  2. AMLODIPINE [Suspect]
     Indication: PRODUCT USED FOR UNKNOWN INDICATION
     Dosage: 5 MG, DAILY
     Route: 048
  3. ASPIRIN [Concomitant]
     Dosage: 75 MG, DAILY
     Route: 048
  4. TAMSULOSIN [Concomitant]
     Dosage: 400 ?G, DAILY
     Route: 048
  5. METFORMIN [Concomitant]
     Dosage: 850 MG, BID
     Route: 048
  6. BIMATOPROST [Concomitant]
     Dosage: 1 DF, DAILY
     Route: 031
  7. ATORVASTATIN [Concomitant]
     Dosage: 20 MG, DAILY
     Route: 048

REACTIONS (6)
  - Cardiac failure congestive [Not Recovered/Not Resolved]
  - Pleural effusion [Unknown]
  - Hyponatraemia [Unknown]
  - Fluid overload [Unknown]
  - Aortic stenosis [Unknown]
  - Oedema peripheral [Unknown]
